FAERS Safety Report 7117341-X (Version None)
Quarter: 2010Q4

REPORT INFORMATION
  Report Type: 
  Country: None (occurrence: None)
  Receive Date: 20101122
  Receipt Date: 20081201
  Transmission Date: 20110411
  Serious: Yes (Other)
  Sender: FDA-Public Use
  Company Number: US-TEVA PHARMACEUTICALS-007609USA

PATIENT
  Age: 21 Year
  Sex: Female

DRUGS (3)
  1. PLAN B [Suspect]
     Indication: POST COITAL CONTRACEPTION
     Dosage: 1 EVERY 12 HRS TIMES 2
     Route: 048
     Dates: start: 20080915, end: 20080915
  2. ALLOPURINOL [Concomitant]
  3. LISINOPRIL [Concomitant]
     Route: 048
     Dates: start: 20080901

REACTIONS (3)
  - CONVULSION [None]
  - MALAISE [None]
  - VAGINAL HAEMORRHAGE [None]
